FAERS Safety Report 23288437 (Version 1)
Quarter: 2023Q4

REPORT INFORMATION
  Report Type: Spontaneous
  Country: US (occurrence: US)
  Receive Date: 20231212
  Receipt Date: 20231212
  Transmission Date: 20240109
  Serious: No
  Sender: FDA-Public Use
  Company Number: US-ABBVIE-2309343US

PATIENT
  Age: 7 Year
  Sex: Male

DRUGS (1)
  1. GELNIQUE [Suspect]
     Active Substance: OXYBUTYNIN
     Indication: Neurogenic bladder
     Dosage: DOSE DESC: UNKNOWN
     Route: 003

REACTIONS (3)
  - Incorrect dose administered [Unknown]
  - Urinary incontinence [Not Recovered/Not Resolved]
  - Product packaging quantity issue [Unknown]

NARRATIVE: CASE EVENT DATE: 20230201
